FAERS Safety Report 9146288 (Version 1)
Quarter: 2013Q1

REPORT INFORMATION
  Report Type: Spontaneous
  Country: US (occurrence: None)
  Receive Date: 20130227
  Receipt Date: 20130227
  Transmission Date: 20140127
  Serious: No
  Sender: FDA-Public Use
  Company Number: None

PATIENT
  Age: 46 Year
  Sex: Male
  Weight: 81.65 kg

DRUGS (5)
  1. ZOLPIDEM TARTRATE [Suspect]
     Dates: start: 20110102
  2. HYDROXYZINE PAMOATE [Suspect]
  3. BUPROPION HYDROCHLORIDE [Suspect]
     Dosage: 12HR SA TAB
  4. ACETAMINOPHEN / TRAMADOL HYDROCHLORIDE [Suspect]
  5. CYCLOBENAZPRINE HYDROCHLORIDE [Suspect]

REACTIONS (2)
  - Loss of consciousness [None]
  - Memory impairment [None]
